FAERS Safety Report 5200699-6 (Version None)
Quarter: 2006Q4

REPORT INFORMATION
  Report Type: 
  Country: None (occurrence: None)
  Receive Date: 20061016
  Receipt Date: 20060627
  Transmission Date: 20070319
  Serious: No
  Sender: FDA-Public Use
  Company Number: 2006SP002560

PATIENT
  Age: 48 Year
  Sex: Female
  Weight: 58.9676 kg

DRUGS (2)
  1. LUNESTA [Suspect]
     Indication: INSOMNIA
     Dosage: 2 MG; ORAL
     Route: 048
     Dates: start: 20060626
  2. XANAX [Concomitant]

REACTIONS (3)
  - DRUG INEFFECTIVE [None]
  - DYSGEUSIA [None]
  - INSOMNIA [None]
